FAERS Safety Report 8613450-4 (Version None)
Quarter: 2012Q3

REPORT INFORMATION
  Report Type: 
  Country: None (occurrence: None)
  Receive Date: 20120822
  Receipt Date: 20120816
  Transmission Date: 20120928
  Serious: Yes (Other)
  Sender: FDA-Public Use
  Company Number: US-AMGEN-USASP2012043785

PATIENT
  Age: 58 Year
  Sex: Female
  Weight: 111.57 kg

DRUGS (12)
  1. METOPROLOL SUCCINATE [Concomitant]
     Dosage: 100 MG, BID
     Route: 048
  2. METFORMIN HYDROCHLORIDE [Concomitant]
     Dosage: 1000 MG, BID
     Route: 048
  3. COZAAR [Concomitant]
     Dosage: UNK UNK, QD
     Route: 048
  4. LASIX [Concomitant]
     Dosage: 40 MG, UNK
     Route: 048
  5. LIPITOR [Concomitant]
     Dosage: 10 MG, UNK
     Route: 048
  6. ALLEGRA [Concomitant]
     Dosage: 180 MG, UNK
  7. PROLIA [Suspect]
     Indication: OSTEOPOROSIS
     Dosage: 60 MG, Q6MO
     Dates: start: 20110823
  8. FLONASE [Concomitant]
     Dosage: UNK UNK, QD
     Route: 055
  9. GLYBURIDE [Concomitant]
  10. VITAMIN D [Concomitant]
     Dosage: UNK
  11. CENTRUM SILVER                     /01292501/ [Concomitant]
  12. MULTIVITAMIN                       /00097801/ [Concomitant]

REACTIONS (11)
  - PULMONARY HYPERTENSION [None]
  - HEADACHE [None]
  - SKIN DISORDER [None]
  - CHEST DISCOMFORT [None]
  - NAUSEA [None]
  - DIARRHOEA [None]
  - CHEST PAIN [None]
  - TACHYCARDIA [None]
  - HYPERTENSION [None]
  - ACROCHORDON [None]
  - DYSPNOEA [None]
